FAERS Safety Report 18945867 (Version 2)
Quarter: 2021Q1

REPORT INFORMATION
  Report Type: Spontaneous
  Country: GB (occurrence: GB)
  Receive Date: 20210226
  Receipt Date: 20210302
  Transmission Date: 20210420
  Serious: Yes (Life-Threatening, Hospitalization, Other)
  Sender: FDA-Public Use
  Company Number: GB-ADVANZ PHARMA-202101001314

PATIENT

DRUGS (7)
  1. MIDAZOLAM. [Suspect]
     Active Substance: MIDAZOLAM
     Indication: SEIZURE
     Dosage: INFUSION
  2. SODIUM VALPROATE [Suspect]
     Active Substance: VALPROATE SODIUM
     Indication: SEIZURE
  3. CLOBAZAM. [Concomitant]
     Active Substance: CLOBAZAM
     Indication: SEIZURE
     Dosage: UNK
  4. PREDNISOLONE. [Suspect]
     Active Substance: PREDNISOLONE
     Dosage: 60 MG, QD
  5. LEVETIRACETAM. [Suspect]
     Active Substance: LEVETIRACETAM
     Indication: SEIZURE
     Dosage: UNK
  6. PHENYTOIN. [Suspect]
     Active Substance: PHENYTOIN
     Indication: SEIZURE
  7. MEROPENEM. [Concomitant]
     Active Substance: MEROPENEM
     Indication: PNEUMONIA
     Dosage: UNK

REACTIONS (7)
  - Haemophagocytic lymphohistiocytosis [Recovering/Resolving]
  - Blood creatinine increased [Recovering/Resolving]
  - Multiple organ dysfunction syndrome [Recovering/Resolving]
  - Depressed level of consciousness [Recovering/Resolving]
  - Alanine aminotransferase increased [Recovering/Resolving]
  - Drug ineffective [Unknown]
  - Drug reaction with eosinophilia and systemic symptoms [Recovering/Resolving]
